FAERS Safety Report 4515392-2 (Version None)
Quarter: 2004Q4

REPORT INFORMATION
  Report Type: 
  Country: None (occurrence: None)
  Receive Date: 20041126
  Receipt Date: 20041115
  Transmission Date: 20050328
  Serious: Yes (Other)
  Sender: FDA-Public Use
  Company Number: 2004093879

PATIENT
  Age: 70 Year
  Sex: Male
  Weight: 72.5755 kg

DRUGS (7)
  1. NORVASC [Suspect]
     Indication: HYPERTENSION
     Dosage: ORAL
     Route: 048
     Dates: end: 20040101
  2. ASPIRIN [Concomitant]
  3. ATENOLOL [Concomitant]
  4. PRINIZIDE (HYDROCHLOROTHIAZIDE, LISINOPRIL) [Concomitant]
  5. TERAZOSIN HYDROCHLORIDE [Concomitant]
  6. SIMVASTATIN [Concomitant]
  7. NITROGLYCERIN [Concomitant]

REACTIONS (2)
  - CHEST PAIN [None]
  - OEDEMA PERIPHERAL [None]
